FAERS Safety Report 6639189-2 (Version None)
Quarter: 2010Q1

REPORT INFORMATION
  Report Type: 
  Country: None (occurrence: None)
  Receive Date: 20100312
  Receipt Date: 20100304
  Transmission Date: 20100710
  Serious: Yes (Death, Other)
  Sender: FDA-Public Use
  Company Number: 2010SP003149

PATIENT
  Age: 49 Year
  Sex: Female

DRUGS (6)
  1. REMERON [Suspect]
     Indication: DRUG USE FOR UNKNOWN INDICATION
     Dosage: 15 MG;QD;PO
     Route: 048
     Dates: start: 20091212, end: 20091216
  2. SEROQUEL [Suspect]
     Indication: DRUG USE FOR UNKNOWN INDICATION
     Dosage: 50 MG;ONCE;PO ; 25 MG;ONCE;PO ; 225 MG;ONCE;PO ; 200 MG;ONCE;PO
     Route: 048
     Dates: start: 20091212, end: 20091212
  3. SEROQUEL [Suspect]
     Indication: DRUG USE FOR UNKNOWN INDICATION
     Dosage: 50 MG;ONCE;PO ; 25 MG;ONCE;PO ; 225 MG;ONCE;PO ; 200 MG;ONCE;PO
     Route: 048
     Dates: start: 20091214, end: 20091215
  4. SEROQUEL [Suspect]
     Indication: DRUG USE FOR UNKNOWN INDICATION
     Dosage: 50 MG;ONCE;PO ; 25 MG;ONCE;PO ; 225 MG;ONCE;PO ; 200 MG;ONCE;PO
     Route: 048
     Dates: start: 20091216, end: 20091216
  5. SEROQUEL [Suspect]
     Indication: DRUG USE FOR UNKNOWN INDICATION
     Dosage: 50 MG;ONCE;PO ; 25 MG;ONCE;PO ; 225 MG;ONCE;PO ; 200 MG;ONCE;PO
     Route: 048
     Dates: start: 20091216, end: 20091216
  6. TEMESTA [Concomitant]

REACTIONS (2)
  - COMPLETED SUICIDE [None]
  - HALLUCINATION, AUDITORY [None]
